FAERS Safety Report 17509047 (Version 2)
Quarter: 2020Q2

REPORT INFORMATION
  Report Type: Spontaneous
  Country: US (occurrence: US)
  Receive Date: 20200306
  Receipt Date: 20200529
  Transmission Date: 20200713
  Serious: No
  Sender: FDA-Public Use
  Company Number: US-009507513-2002USA010032

PATIENT
  Sex: Female
  Weight: 119.74 kg

DRUGS (11)
  1. OMEPRAZOLE. [Concomitant]
     Active Substance: OMEPRAZOLE
     Dosage: 20 MILLIGRAM, QD (#90 CAP)
     Route: 048
     Dates: start: 20200113
  2. NEXPLANON [Suspect]
     Active Substance: ETONOGESTREL
     Indication: CONTRACEPTION
     Dosage: 1 ROD EVERY 3 YEARS, LEFT UPPER ARM
     Route: 059
     Dates: start: 20170303, end: 20200226
  3. NEXPLANON [Suspect]
     Active Substance: ETONOGESTREL
     Dosage: 1 ROD EVERY 3 YEARS, RIGHT ARM
     Route: 059
     Dates: start: 20200226
  4. ESCITALOPRAM OXALATE. [Concomitant]
     Active Substance: ESCITALOPRAM OXALATE
     Dosage: 10 MILLIGRAM, QD (#90 TAB)
     Route: 048
     Dates: start: 20200113
  5. VERAPAMIL [Concomitant]
     Active Substance: VERAPAMIL HYDROCHLORIDE
     Dosage: 180 MILLIGRAM, QD (#90 CAP)
     Route: 048
     Dates: start: 20200113
  6. LORATADINE 10 MG [Concomitant]
     Active Substance: LORATADINE
     Dosage: 10 MILLIGRAM, QD (#90 TAB)
     Route: 048
     Dates: start: 20200113
  7. EMPAGLIFLOZIN [Concomitant]
     Active Substance: EMPAGLIFLOZIN
     Dosage: 25 MILLIGRAM, QD (#90 TAB)
     Route: 048
     Dates: start: 20200113
  8. FLUTICASONE PROPIONATE. [Concomitant]
     Active Substance: FLUTICASONE PROPIONATE
     Dosage: 2 DOSAGE FORM, QD (#47.4 GM)
     Route: 045
     Dates: start: 20190702
  9. GLIMEPIRIDE. [Concomitant]
     Active Substance: GLIMEPIRIDE
     Dosage: 0.5 MILLIGRAM, QAM (#45 TAB)
     Route: 048
     Dates: start: 20200113
  10. ALBUTEROL SULFATE. [Concomitant]
     Active Substance: ALBUTEROL SULFATE
     Dosage: 2 DOSAGE FORM, Q4H (PRN)
     Dates: start: 20200117
  11. ASCORBIC ACID. [Concomitant]
     Active Substance: ASCORBIC ACID
     Dosage: 500 MILLIGRAM, QD
     Route: 048
     Dates: start: 20170702

REACTIONS (3)
  - Pruritus [Unknown]
  - Device breakage [Recovered/Resolved]
  - Implant site irritation [Unknown]
